FAERS Safety Report 7531672-0 (Version None)
Quarter: 2011Q2

REPORT INFORMATION
  Report Type: 
  Country: None (occurrence: None)
  Receive Date: 20110608
  Receipt Date: 20110524
  Transmission Date: 20111010
  Serious: No
  Sender: FDA-Public Use
  Company Number: US-B.I. PHARMACEUTICALS,INC./RIDGEFIELD-2011-BP-05326BP

PATIENT
  Sex: Male
  Weight: 127.91 kg

DRUGS (12)
  1. LISINOPRIL [Concomitant]
     Indication: HYPERTENSION
     Dosage: 80 MG
  2. LIPITOR [Concomitant]
  3. CARDIZEM CD [Concomitant]
     Dosage: 180 MG
  4. PRADAXA [Suspect]
     Indication: EXTRASYSTOLES
  5. TRILIPIX [Concomitant]
     Dosage: 135 MG
  6. PRADAXA [Suspect]
     Indication: ATRIAL FIBRILLATION
     Dosage: 300 MG
     Route: 048
     Dates: start: 20110127, end: 20110216
  7. GLIPIZIDE [Concomitant]
     Indication: MUSCLE SPASMS
     Dosage: 2.5 MG
  8. LANCID [Concomitant]
     Indication: DIABETES MELLITUS
  9. LANTUS [Concomitant]
  10. CRESTOR [Concomitant]
     Dosage: 10 MG
  11. JANUVIA [Concomitant]
     Indication: DIABETES MELLITUS
     Dosage: 100 MG
  12. ACTOS [Concomitant]
     Indication: DIABETES MELLITUS
     Dosage: 45 MG

REACTIONS (6)
  - ABDOMINAL PAIN [None]
  - ANORECTAL DISCOMFORT [None]
  - RECTAL HAEMORRHAGE [None]
  - DIARRHOEA [None]
  - PROCTALGIA [None]
  - FLATULENCE [None]
